FAERS Safety Report 9921258 (Version 1)
Quarter: 2014Q1

REPORT INFORMATION
  Report Type: Spontaneous
  Country: US (occurrence: None)
  Receive Date: 20140221
  Receipt Date: 20140221
  Transmission Date: 20141002
  Serious: Yes (Hospitalization)
  Sender: FDA-Public Use
  Company Number: None

PATIENT
  Age: 65 Year
  Sex: Female
  Weight: 63.96 kg

DRUGS (2)
  1. PROPOFOL [Suspect]
     Indication: ANAESTHESIA
     Route: 042
     Dates: start: 20130620
  2. LIDOCAINE 1% [Suspect]
     Indication: ANAESTHESIA
     Route: 042
     Dates: start: 20130620

REACTIONS (5)
  - Feeling abnormal [None]
  - Blindness [None]
  - Gait disturbance [None]
  - Loss of consciousness [None]
  - Convulsion [None]
